FAERS Safety Report 9717476 (Version 1)
Quarter: 2013Q4

REPORT INFORMATION
  Report Type: Spontaneous
  Country: None (occurrence: JP)
  Receive Date: 20131127
  Receipt Date: 20131127
  Transmission Date: 20140711
  Serious: Yes (Hospitalization)
  Sender: FDA-Public Use
  Company Number: JP-EISAI INC-E2090-02989-SPO-JP

PATIENT
  Age: 16 Year
  Sex: Male

DRUGS (3)
  1. EXCEGRAN [Suspect]
     Indication: EPILEPSY
     Route: 048
     Dates: start: 20130320, end: 20130415
  2. MEIACT [Concomitant]
     Indication: STREPTOCOCCAL INFECTION
     Dosage: 300MG
     Route: 048
     Dates: start: 20130411, end: 20130415
  3. SULBACILLIN [Concomitant]
     Indication: STREPTOCOCCAL INFECTION
     Dosage: 4.5GRAMS
     Route: 042
     Dates: start: 20130415, end: 20130418

REACTIONS (1)
  - Drug reaction with eosinophilia and systemic symptoms [Recovered/Resolved]
